FAERS Safety Report 4993263-5 (Version None)
Quarter: 2006Q1

REPORT INFORMATION
  Report Type: 
  Country: None (occurrence: None)
  Receive Date: 20060314
  Receipt Date: 20050519
  Transmission Date: 20060701
  Serious: Yes (Other)
  Sender: FDA-Public Use
  Company Number: 200511679GDS

PATIENT
  Age: 55 Year
  Sex: Male

DRUGS (5)
  1. NAPROXEN [Suspect]
     Dosage: 500 MG, TOTAL DAILY
  2. NAPROXEN [Suspect]
     Indication: SKIN TEST
     Dosage: SEE IMAGE
  3. ASPIRIN [Concomitant]
  4. ROFECOXIB [Concomitant]
  5. IBUPROFEN [Concomitant]

REACTIONS (6)
  - ANAPHYLACTIC REACTION [None]
  - ANGIONEUROTIC OEDEMA [None]
  - CHEST DISCOMFORT [None]
  - DYSPNOEA [None]
  - FLUSHING [None]
  - HYPOTENSION [None]
